FAERS Safety Report 15031975 (Version 6)
Quarter: 2025Q4

REPORT INFORMATION
  Report Type: Spontaneous
  Country: EU (occurrence: EU)
  Receive Date: 20180619
  Receipt Date: 20251009
  Transmission Date: 20260117
  Serious: Yes (Death, Life-Threatening, Hospitalization, Other)
  Sender: Steriscience PTE
  Company Number: None

PATIENT
  Age: 76 Year
  Sex: Male

DRUGS (12)
  1. VANCOMYCIN [Suspect]
     Active Substance: VANCOMYCIN
     Indication: Corynebacterium infection
     Dosage: UNK
     Route: 065
  2. LINEZOLID [Suspect]
     Active Substance: LINEZOLID
     Indication: Corynebacterium infection
     Dosage: UNK
     Route: 065
  3. LINEZOLID [Suspect]
     Active Substance: LINEZOLID
     Indication: Acute respiratory distress syndrome
  4. MEROPENEM [Suspect]
     Active Substance: MEROPENEM
     Indication: Lower respiratory tract infection
     Dosage: UNK
     Route: 042
  5. MEROPENEM [Suspect]
     Active Substance: MEROPENEM
     Dosage: UNK
     Route: 065
  6. METHYLPREDNISOLONE [Suspect]
     Active Substance: METHYLPREDNISOLONE
     Indication: Dermatitis atopic
     Dosage: 16 MG, QD
     Route: 048
  7. METHYLPREDNISOLONE [Suspect]
     Active Substance: METHYLPREDNISOLONE
     Indication: Myelodysplastic syndrome
  8. OXYGEN [Concomitant]
     Active Substance: OXYGEN
     Indication: Acute respiratory distress syndrome
     Dosage: UNK
     Route: 065
  9. MOXIFLOXACIN [Concomitant]
     Active Substance: MOXIFLOXACIN
     Indication: Lower respiratory tract infection
     Dosage: UNK,EMPIRIC ANTIMICROBIAL TREATMENT
     Route: 065
  10. MOXIFLOXACIN [Concomitant]
     Active Substance: MOXIFLOXACIN
     Indication: Acute respiratory distress syndrome
  11. CEFTRIAXONE [Concomitant]
     Active Substance: CEFTRIAXONE
     Indication: Acute respiratory distress syndrome
     Dosage: UNK,EMPIRIC ANTIMICROBIAL TREATMENT
     Route: 065
  12. CEFTRIAXONE [Concomitant]
     Active Substance: CEFTRIAXONE
     Indication: Lower respiratory tract infection

REACTIONS (5)
  - Sepsis [Fatal]
  - Septic shock [Fatal]
  - Respiratory failure [Fatal]
  - Corynebacterium infection [None]
  - Multiple-drug resistance [None]
